FAERS Safety Report 10709478 (Version 1)
Quarter: 2015Q1

REPORT INFORMATION
  Report Type: Spontaneous
  Country: US (occurrence: None)
  Receive Date: 20150113
  Receipt Date: 20150113
  Transmission Date: 20150721
  Serious: Yes (Other)
  Sender: FDA-Public Use
  Company Number: None

PATIENT
  Age: 33 Year
  Sex: Female
  Weight: 86.18 kg

DRUGS (1)
  1. PARAGARD T 380A [Suspect]
     Active Substance: COPPER
     Dates: start: 20100111, end: 20150112

REACTIONS (4)
  - Incorrect drug administration duration [None]
  - Vaginal haemorrhage [None]
  - Uterine disorder [None]
  - Muscle spasms [None]

NARRATIVE: CASE EVENT DATE: 20141215
